FAERS Safety Report 9504523 (Version 1)
Quarter: 2013Q3

REPORT INFORMATION
  Report Type: Report from Study
  Country: AU (occurrence: AU)
  Receive Date: 20130906
  Receipt Date: 20130906
  Transmission Date: 20140515
  Serious: Yes (Other)
  Sender: FDA-Public Use
  Company Number: PHHY2013AU095421

PATIENT
  Age: 37 Year
  Sex: Male

DRUGS (12)
  1. SIMULECT [Suspect]
     Indication: IMMUNOSUPPRESSION
     Dosage: UNK UKN, UNK
  2. TACROLIMUS [Suspect]
     Indication: IMMUNOSUPPRESSION
     Dosage: UNK UKN, UNK
  3. CERTICAN [Concomitant]
     Indication: IMMUNOSUPPRESSION
     Dosage: 700 MG, QD
  4. METHYLPREDNISOLONE [Concomitant]
     Indication: IMMUNOSUPPRESSION
  5. MYCOPHENOLATE MOFETIL [Concomitant]
     Indication: IMMUNOSUPPRESSION
  6. AZATHIOPRINE [Concomitant]
  7. VALGANCICLOVIR [Concomitant]
  8. BACTRIM [Concomitant]
  9. TRIMETHOPRIM SULFAMETHOXAZOLE [Concomitant]
  10. PANTOPRAZOLE [Concomitant]
  11. NYSTATIN [Concomitant]
  12. CORTICOSTEROIDS [Concomitant]
     Dosage: UNK UKN, UNK

REACTIONS (20)
  - Sclerosing encapsulating peritonitis [Recovered/Resolved]
  - Abdominal pain [Recovered/Resolved]
  - Ascites [Unknown]
  - Diarrhoea [Recovered/Resolved]
  - Fibrosis [Unknown]
  - Intestinal obstruction [Unknown]
  - Abdominal distension [Recovered/Resolved]
  - Decreased appetite [Recovering/Resolving]
  - Vomiting [Recovered/Resolved]
  - Weight decreased [Recovering/Resolving]
  - Pyloric stenosis [Unknown]
  - Small intestinal obstruction [Recovering/Resolving]
  - Peritonitis bacterial [Unknown]
  - Staphylococcal infection [Unknown]
  - Cytomegalovirus gastritis [Unknown]
  - Oedema mucosal [Unknown]
  - Device related infection [Unknown]
  - Blood albumin decreased [Recovered/Resolved]
  - Proteinuria [Unknown]
  - Leukopenia [Unknown]
